FAERS Safety Report 13928335 (Version 1)
Quarter: 2017Q3

REPORT INFORMATION
  Report Type: Spontaneous
  Country: US (occurrence: None)
  Receive Date: 20170901
  Receipt Date: 20170901
  Transmission Date: 20171127
  Serious: Yes (Life-Threatening, Hospitalization, Disabling, Other)
  Sender: FDA-Public Use
  Company Number: None

PATIENT

DRUGS (1)
  1. FENTANYL 75 MCG [Suspect]
     Active Substance: FENTANYL

REACTIONS (18)
  - Malaise [None]
  - Pain [None]
  - Drug withdrawal syndrome [None]
  - Loss of personal independence in daily activities [None]
  - Device malfunction [None]
  - Device infusion issue [None]
  - Device failure [None]
  - Vomiting [None]
  - Poor quality device used [None]
  - Device use error [None]
  - Myocardial infarction [None]
  - Diarrhoea [None]
  - Drug dose omission [None]
  - Loss of consciousness [None]
  - Fear [None]
  - Drug effect decreased [None]
  - Memory impairment [None]
  - Abdominal distension [None]

NARRATIVE: CASE EVENT DATE: 20161110
